FAERS Safety Report 7981705-2 (Version None)
Quarter: 2011Q4

REPORT INFORMATION
  Report Type: 
  Country: None (occurrence: None)
  Receive Date: 20111215
  Receipt Date: 20111206
  Transmission Date: 20120403
  Serious: Yes (Hospitalization)
  Sender: FDA-Public Use
  Company Number: US-JNJFOC-20111203010

PATIENT
  Sex: Female
  Weight: 44.91 kg

DRUGS (10)
  1. TOPAMAX [Suspect]
     Dosage: 100MG+50MG
     Route: 048
  2. DURAGESIC-100 [Suspect]
     Route: 062
  3. TOPAMAX [Suspect]
     Route: 048
     Dates: start: 20010101
  4. DURAGESIC-100 [Suspect]
     Route: 062
     Dates: start: 20030101
  5. TOPAMAX [Suspect]
     Route: 048
  6. TOPAMAX [Suspect]
     Indication: BURNING SENSATION
     Route: 048
  7. DURAGESIC-100 [Suspect]
     Route: 062
  8. TOPAMAX [Suspect]
     Dosage: 50MG+25MG
     Route: 048
  9. DURAGESIC-100 [Suspect]
     Dosage: 100UG/HR+25UG/HR
     Route: 062
     Dates: end: 20050101
  10. DURAGESIC-100 [Suspect]
     Indication: COMPLEX REGIONAL PAIN SYNDROME
     Route: 062

REACTIONS (17)
  - WEIGHT DECREASED [None]
  - BLISTER [None]
  - SKIN BURNING SENSATION [None]
  - STRESS [None]
  - HALLUCINATION [None]
  - BILE DUCT STONE [None]
  - INSOMNIA [None]
  - VOMITING [None]
  - PRODUCT QUALITY ISSUE [None]
  - GALLBLADDER PAIN [None]
  - SCAR [None]
  - COMPLEX REGIONAL PAIN SYNDROME [None]
  - INTERVERTEBRAL DISC DEGENERATION [None]
  - DRUG ADMINISTERED AT INAPPROPRIATE SITE [None]
  - DRUG TOLERANCE [None]
  - HYSTERECTOMY [None]
  - SPINAL COLUMN STENOSIS [None]
